FAERS Safety Report 19452591 (Version 1)
Quarter: 2021Q2

REPORT INFORMATION
  Report Type: Spontaneous
  Country: US (occurrence: US)
  Receive Date: 20210623
  Receipt Date: 20210623
  Transmission Date: 20210717
  Serious: No
  Sender: FDA-Public Use
  Company Number: US-SA-2021SA205136

PATIENT
  Sex: Female

DRUGS (20)
  1. ESTRADIOL. [Concomitant]
     Active Substance: ESTRADIOL
  2. PROGESTERONE. [Concomitant]
     Active Substance: PROGESTERONE
  3. PRISTIQ EXTENDED?RELEASE [Concomitant]
     Active Substance: DESVENLAFAXINE SUCCINATE
  4. BUPROPION HCL [Concomitant]
     Active Substance: BUPROPION HYDROCHLORIDE
  5. SUMATRIPTAN SUCCINATE. [Concomitant]
     Active Substance: SUMATRIPTAN SUCCINATE
  6. VITAMIN C [Concomitant]
     Active Substance: ASCORBIC ACID
  7. PFIZER?BIONTECH COVID?19 VACCINE [Concomitant]
     Active Substance: TOZINAMERAN
  8. HYDROCHLOROTHIAZIDE. [Concomitant]
     Active Substance: HYDROCHLOROTHIAZIDE
  9. DUPIXENT [Suspect]
     Active Substance: DUPILUMAB
     Indication: ILLNESS
     Dosage: 600 MG, 1X
     Route: 058
     Dates: start: 202104, end: 202104
  10. ALBUTEROL SULFATE HFA [Concomitant]
     Active Substance: ALBUTEROL SULFATE
  11. ALPRAZOLAM. [Concomitant]
     Active Substance: ALPRAZOLAM
  12. LEVOTHYROXINE. [Concomitant]
     Active Substance: LEVOTHYROXINE
  13. VITAMIN D2 [Concomitant]
     Active Substance: ERGOCALCIFEROL
  14. BIOTIN [Concomitant]
     Active Substance: BIOTIN
  15. FLONASE ALLERGY RELIEF [Concomitant]
     Active Substance: FLUTICASONE PROPIONATE
  16. TELMISARTAN. [Concomitant]
     Active Substance: TELMISARTAN
  17. IRON [Concomitant]
     Active Substance: IRON
  18. SINGULAIR [Concomitant]
     Active Substance: MONTELUKAST SODIUM
  19. VITAMIN B12 [VITAMIN B12 NOS] [Concomitant]
     Active Substance: CYANOCOBALAMIN
  20. MULTIVITAMINS [VITAMINS NOS] [Concomitant]
     Active Substance: VITAMINS

REACTIONS (5)
  - Fatigue [Unknown]
  - Chloasma [Unknown]
  - Hypersomnia [Unknown]
  - Contusion [Unknown]
  - Influenza like illness [Unknown]

NARRATIVE: CASE EVENT DATE: 202104
